FAERS Safety Report 10337985 (Version 1)
Quarter: 2014Q3

REPORT INFORMATION
  Report Type: Report from Study
  Country: US (occurrence: US)
  Receive Date: 20140724
  Receipt Date: 20140724
  Transmission Date: 20150326
  Serious: Yes (Other)
  Sender: FDA-Public Use
  Company Number: PHEH2014US014622

PATIENT
  Sex: Female

DRUGS (1)
  1. GILENYA [Suspect]
     Active Substance: FINGOLIMOD HYDROCHLORIDE
     Indication: MULTIPLE SCLEROSIS
     Dosage: 0.5 MG, QD
     Route: 048
     Dates: start: 20140709, end: 20140717

REACTIONS (8)
  - Psychotic disorder [Unknown]
  - Mental disorder [Unknown]
  - Screaming [Unknown]
  - Dysgeusia [Unknown]
  - Cognitive disorder [Unknown]
  - Paranoia [Unknown]
  - Parosmia [Unknown]
  - Hallucination [Unknown]
